FAERS Safety Report 24531990 (Version 1)
Quarter: 2024Q4

REPORT INFORMATION
  Report Type: Spontaneous
  Country: US (occurrence: US)
  Receive Date: 20241022
  Receipt Date: 20241022
  Transmission Date: 20250114
  Serious: No
  Sender: BRISTOL-MYERS SQUIBB COMPANY
  Company Number: US-BRISTOL-MYERS SQUIBB COMPANY-2024-165831

PATIENT
  Age: 86 Year
  Sex: Male
  Weight: 67.59 kg

DRUGS (1)
  1. REVLIMID [Suspect]
     Active Substance: LENALIDOMIDE
     Indication: Plasma cell myeloma
     Dosage: DOSE: UNKNOWN; FREQUENCY: ONCE A DAY FOR 21 DAYS AND 7 DAYS OFF
     Route: 048
     Dates: start: 2021

REACTIONS (3)
  - Diarrhoea [Unknown]
  - Product lot number issue [Unknown]
  - Product expiration date issue [Unknown]

NARRATIVE: CASE EVENT DATE: 20241014
